FAERS Safety Report 8096755-8 (Version None)
Quarter: 2012Q1

REPORT INFORMATION
  Report Type: 
  Country: None (occurrence: None)
  Receive Date: 20120129
  Receipt Date: 20111205
  Transmission Date: 20120608
  Serious: No
  Sender: FDA-Public Use
  Company Number: US-ABBOTT-11P-163-0858178-00

PATIENT
  Sex: Male

DRUGS (8)
  1. OXYCODONE HCL [Concomitant]
     Indication: PAIN
     Dosage: 5/325, 1-2 EVERY 4-6 HRS AS NEEDED
  2. METHOTREXATE [Concomitant]
     Indication: ARTHRITIS
     Dosage: 5 TABS ON SUNDAY AND MONDAY
  3. OMEPRAZOLE [Concomitant]
     Indication: GASTRIC DISORDER
  4. ALLOPURINOL [Concomitant]
     Indication: GOUT
  5. HUMIRA [Suspect]
     Indication: RHEUMATOID ARTHRITIS
     Route: 058
     Dates: start: 20110901
  6. PREDNISONE TAB [Concomitant]
     Indication: PRODUCT USED FOR UNKNOWN INDICATION
     Dosage: 1 TABLET EVERY MORNING
  7. FOLIC ACID [Concomitant]
     Indication: PRODUCT USED FOR UNKNOWN INDICATION
  8. AMLODIPINE [Concomitant]
     Indication: BLOOD PRESSURE

REACTIONS (6)
  - OEDEMA PERIPHERAL [None]
  - INJECTION SITE PAIN [None]
  - ARTHRALGIA [None]
  - PRURITUS [None]
  - INJECTION SITE HAEMORRHAGE [None]
  - JOINT SWELLING [None]
